FAERS Safety Report 9855258 (Version 2)
Quarter: 2014Q1

REPORT INFORMATION
  Report Type: Spontaneous
  Country: PT (occurrence: PT)
  Receive Date: 20140130
  Receipt Date: 20140217
  Transmission Date: 20141002
  Serious: Yes (Hospitalization, Disabling)
  Sender: FDA-Public Use
  Company Number: PT-JNJFOC-20140112800

PATIENT
  Sex: Male

DRUGS (3)
  1. ZYTIGA [Suspect]
     Indication: PROSTATE CANCER
     Route: 048
     Dates: start: 20140104, end: 20140106
  2. ZYTIGA [Suspect]
     Indication: PROSTATE CANCER
     Route: 048
     Dates: start: 20140110
  3. ZYTIGA [Suspect]
     Indication: PROSTATE CANCER
     Route: 048
     Dates: start: 20131206, end: 20140103

REACTIONS (8)
  - Oedema [Recovered/Resolved]
  - Prostatitis [Unknown]
  - Pain [Unknown]
  - Anaemia [Unknown]
  - Disease progression [Unknown]
  - Metastases to lung [Unknown]
  - Cardiac disorder [Unknown]
  - Asthenia [Unknown]
